FAERS Safety Report 6342930-X (Version None)
Quarter: 2009Q3

REPORT INFORMATION
  Report Type: 
  Country: None (occurrence: None)
  Receive Date: 20090908
  Receipt Date: 20090831
  Transmission Date: 20100115
  Serious: Yes (Other)
  Sender: FDA-Public Use
  Company Number: US-ROCHE-653395

PATIENT
  Age: 60 Year
  Sex: Male

DRUGS (2)
  1. CLONAZEPAM [Suspect]
     Indication: DEPRESSION
     Dosage: OTHER INDICATION: POSTTRAUMATIC STRESS DISORDER
     Route: 065
  2. CLONAZEPAM [Suspect]
     Route: 065

REACTIONS (1)
  - CATATONIA [None]
